FAERS Safety Report 7736741-8 (Version None)
Quarter: 2011Q3

REPORT INFORMATION
  Report Type: 
  Country: None (occurrence: None)
  Receive Date: 20110908
  Receipt Date: 20110901
  Transmission Date: 20111222
  Serious: Yes (Hospitalization)
  Sender: FDA-Public Use
  Company Number: PHEH2011US03204

PATIENT
  Age: 15 Year
  Sex: Female

DRUGS (2)
  1. PULMOZYME [Concomitant]
     Dosage: UNK UKN, UNK
  2. TOBI [Suspect]
     Dosage: 300 MG, BID
     Dates: start: 20091203

REACTIONS (1)
  - INFECTION [None]
